FAERS Safety Report 12243273 (Version 1)
Quarter: 2016Q2

REPORT INFORMATION
  Report Type: Spontaneous
  Country: US (occurrence: US)
  Receive Date: 20160406
  Receipt Date: 20160406
  Transmission Date: 20160815
  Serious: No
  Sender: FDA-Public Use
  Company Number: US-SA-2015SA142049

PATIENT
  Sex: Female

DRUGS (2)
  1. ALLEGRA-D [Suspect]
     Active Substance: FEXOFENADINE\PSEUDOEPHEDRINE
     Route: 048
  2. MUCINEX [Suspect]
     Active Substance: GUAIFENESIN
     Route: 065

REACTIONS (2)
  - Extra dose administered [Unknown]
  - Wrong drug administered [Unknown]
